FAERS Safety Report 18969200 (Version 2)
Quarter: 2021Q1

REPORT INFORMATION
  Report Type: Spontaneous
  Country: TR (occurrence: TR)
  Receive Date: 20210304
  Receipt Date: 20210310
  Transmission Date: 20210420
  Serious: Yes (Disabling, Other)
  Sender: FDA-Public Use
  Company Number: TR-BAYER-2021-092508

PATIENT
  Age: 65 Year
  Sex: Female

DRUGS (1)
  1. GADOVIST [Suspect]
     Active Substance: GADOBUTROL
     Indication: PRODUCT USED FOR UNKNOWN INDICATION
     Dosage: UNK, ONCE
     Route: 042
     Dates: start: 20210224, end: 20210224

REACTIONS (2)
  - Respiratory arrest [None]
  - Asphyxia [None]

NARRATIVE: CASE EVENT DATE: 20210224
